FAERS Safety Report 8163681-5 (Version None)
Quarter: 2012Q1

REPORT INFORMATION
  Report Type: 
  Country: None (occurrence: None)
  Receive Date: 20120224
  Receipt Date: 20120221
  Transmission Date: 20120608
  Serious: Yes (Other)
  Sender: FDA-Public Use
  Company Number: US-JNJFOC-20120206490

PATIENT
  Age: 30 Year
  Sex: Female
  Weight: 79.38 kg

DRUGS (1)
  1. VISINE TIRED EYE RELIEF [Suspect]
     Indication: DRY EYE
     Dosage: ONE DROP IN EACH EYE, TWICE
     Route: 047
     Dates: start: 20120201, end: 20120201

REACTIONS (2)
  - EYE PAIN [None]
  - VISION BLURRED [None]
